FAERS Safety Report 6340109-9 (Version None)
Quarter: 2009Q3

REPORT INFORMATION
  Report Type: 
  Country: None (occurrence: None)
  Receive Date: 20090902
  Receipt Date: 20090826
  Transmission Date: 20100115
  Serious: Yes (Hospitalization)
  Sender: FDA-Public Use
  Company Number: TRP_06394_2009

PATIENT
  Sex: Female

DRUGS (2)
  1. RIBAVARIN [Suspect]
     Indication: HEPATITIS C
     Dosage: (800 MG, DAILY)
     Dates: start: 20090227, end: 20090817
  2. PEGASYS [Suspect]
     Indication: HEPATITIS C
     Dosage: (180 UG 1X/WEEK)
     Dates: start: 20090227, end: 20090817

REACTIONS (7)
  - AMMONIA INCREASED [None]
  - ASTHENIA [None]
  - DECREASED APPETITE [None]
  - NEUTROPHIL COUNT DECREASED [None]
  - PLATELET COUNT DECREASED [None]
  - RED BLOOD CELL COUNT DECREASED [None]
  - WHITE BLOOD CELL COUNT DECREASED [None]
